FAERS Safety Report 6027142-1 (Version None)
Quarter: 2009Q1

REPORT INFORMATION
  Report Type: 
  Country: None (occurrence: None)
  Receive Date: 20090105
  Receipt Date: 20081230
  Transmission Date: 20090719
  Serious: Yes (Disabling, Other)
  Sender: FDA-Public Use
  Company Number: DE-ABBOTT-08P-062-0495060-00

PATIENT
  Sex: Male
  Weight: 90 kg

DRUGS (3)
  1. HUMIRA [Suspect]
     Indication: POLYARTHRITIS
     Route: 058
     Dates: start: 20080101
  2. METHOTREXATE [Concomitant]
     Indication: POLYARTHRITIS
     Route: 065
     Dates: start: 20050601
  3. IBUPROFENE [Concomitant]
     Indication: PAIN
     Route: 048
     Dates: start: 20050601

REACTIONS (1)
  - RETINAL VEIN THROMBOSIS [None]
